FAERS Safety Report 4451595-3 (Version None)
Quarter: 2004Q3

REPORT INFORMATION
  Report Type: 
  Country: None (occurrence: None)
  Receive Date: 20040915
  Receipt Date: 20040903
  Transmission Date: 20050211
  Serious: Yes (Hospitalization, Other)
  Sender: FDA-Public Use
  Company Number: KII-2004-0013275

PATIENT
  Age: 17 Year
  Sex: Male

DRUGS (8)
  1. OXYCODONE HCL [Suspect]
     Dosage: ORAL
     Route: 048
  2. BENZODIAZEPINE DERIVATIVES() [Suspect]
     Dosage: ORAL
     Route: 048
  3. ANTIPSYCHOTICS [Concomitant]
  4. TRAZODONE HCL [Concomitant]
  5. VALPROIC ACID [Concomitant]
  6. ASPIRIN W/CODEINE (CODEINE PHOSPHATE, ACETYLSALICYLIC ACID) [Suspect]
     Dosage: ORAL
     Route: 048
  7. CARISOPRODOL [Suspect]
     Dosage: ORAL
     Route: 048
  8. MARIJUANA (CANNABIS) [Suspect]

REACTIONS (13)
  - AGITATION [None]
  - APNOEA [None]
  - COMA [None]
  - DRUG TOXICITY [None]
  - DRUG WITHDRAWAL SYNDROME [None]
  - HYPOTONIA [None]
  - HYPOVENTILATION [None]
  - HYPOXIA [None]
  - LARYNGOSPASM [None]
  - MIOSIS [None]
  - MULTIPLE DRUG OVERDOSE [None]
  - POLYSUBSTANCE ABUSE [None]
  - SOMNOLENCE [None]
